FAERS Safety Report 22021390 (Version 1)
Quarter: 2023Q1

REPORT INFORMATION
  Report Type: Spontaneous
  Country: US (occurrence: US)
  Receive Date: 20230222
  Receipt Date: 20230222
  Transmission Date: 20230417
  Serious: No
  Sender: FDA-Public Use
  Company Number: US-BAYER-2023A016530

PATIENT
  Age: 2 Year
  Sex: Female

DRUGS (1)
  1. MIRALAX [Suspect]
     Active Substance: POLYETHYLENE GLYCOL 3350
     Dosage: HALF CAPFUL IN 4 OZ OF BEVERAGE DOSE
     Route: 048

REACTIONS (2)
  - Product administered to patient of inappropriate age [Unknown]
  - Faeces hard [Unknown]
